FAERS Safety Report 9363906 (Version 1)
Quarter: 2013Q2

REPORT INFORMATION
  Report Type: Spontaneous
  Country: CH (occurrence: CH)
  Receive Date: 20130624
  Receipt Date: 20130624
  Transmission Date: 20140414
  Serious: Yes (Hospitalization)
  Sender: FDA-Public Use
  Company Number: CH-PFIZER INC-2013184485

PATIENT
  Age: 64 Year
  Sex: Female

DRUGS (20)
  1. PIPERACILLIN/TAZOBACTAM [Suspect]
     Dosage: UNK
     Dates: start: 20130204, end: 20130216
  2. ALDACTONE [Suspect]
     Dosage: 25 MG, 2X/DAY
     Route: 048
  3. VANCOMYCIN HCL [Suspect]
     Dosage: UNK
     Dates: start: 20130204, end: 20130220
  4. VANCOMYCIN HCL [Suspect]
     Dosage: UNK
     Dates: start: 20130227, end: 20130302
  5. ENLIVE [Concomitant]
     Dosage: UNK
  6. PERENTEROL [Concomitant]
     Dosage: 250 MG, DAILY
  7. TOREM [Concomitant]
     Dosage: 10 MG, DAILY
  8. ESOMEP [Concomitant]
     Dosage: 40 MG, 2X/DAY
     Route: 042
  9. PERFALGAN [Concomitant]
     Dosage: 1 G, 4X/DAY
  10. HEPARIN [Concomitant]
     Dosage: UNK
  11. FRAGMIN [Concomitant]
  12. DIFLUCAN [Concomitant]
     Dosage: UNK
     Dates: start: 20130217, end: 20130228
  13. MERONEM [Concomitant]
     Dosage: UNK
     Dates: start: 20130216, end: 20130228
  14. CUBICIN [Concomitant]
     Dosage: UNK
     Dates: start: 20130220, end: 20130227
  15. CLINDAMYCIN [Concomitant]
     Dosage: UNK
     Dates: start: 20130228, end: 20130228
  16. CIPROFLOXACIN [Concomitant]
     Dosage: UNK
     Dates: start: 20130227
  17. CASPOFUNGIN [Concomitant]
     Dosage: UNK
     Dates: start: 20130228
  18. GENTAMICIN [Concomitant]
     Dosage: UNK
     Dates: start: 20130228
  19. GANCICLOVIR [Concomitant]
     Indication: CYTOMEGALOVIRUS TEST POSITIVE
     Dosage: UNK
     Dates: start: 20130301
  20. TEICOPLANIN [Concomitant]
     Dosage: UNK
     Dates: start: 20130302

REACTIONS (1)
  - Drug reaction with eosinophilia and systemic symptoms [Unknown]
